FAERS Safety Report 21504878 (Version 2)
Quarter: 2022Q4

REPORT INFORMATION
  Report Type: Report from Study
  Country: FR (occurrence: FR)
  Receive Date: 20221025
  Receipt Date: 20221027
  Transmission Date: 20230113
  Serious: Yes (Hospitalization, Other)
  Sender: FDA-Public Use
  Company Number: FR-GILEAD-2022-0602476

PATIENT
  Sex: Female
  Weight: 73 kg

DRUGS (12)
  1. SACITUZUMAB GOVITECAN [Suspect]
     Active Substance: SACITUZUMAB GOVITECAN
     Indication: Triple negative breast cancer
     Dosage: 10 MG/KG, CYCLE 1, DAYS 1,8
     Route: 042
     Dates: start: 20220204, end: 20221011
  2. SACITUZUMAB GOVITECAN [Suspect]
     Active Substance: SACITUZUMAB GOVITECAN
     Dosage: 10 MG/KG, CYCLE 2, DAYS 1,8
     Route: 042
     Dates: start: 20220304, end: 20220311
  3. SACITUZUMAB GOVITECAN [Suspect]
     Active Substance: SACITUZUMAB GOVITECAN
     Dosage: 10 MG/KG, CYCLE 3, DAYS 1,8
     Route: 042
     Dates: start: 20220325, end: 20220331
  4. SACITUZUMAB GOVITECAN [Suspect]
     Active Substance: SACITUZUMAB GOVITECAN
     Dosage: 10 MG/KG, CYCLE 4, DAYS 1,8
     Route: 042
     Dates: start: 20220415, end: 20220422
  5. SACITUZUMAB GOVITECAN [Suspect]
     Active Substance: SACITUZUMAB GOVITECAN
     Dosage: 7.5 MG/KG, CYCLE 5, DAYS 1,8
     Route: 042
     Dates: start: 20220505, end: 20220513
  6. SACITUZUMAB GOVITECAN [Suspect]
     Active Substance: SACITUZUMAB GOVITECAN
     Dosage: 7.5 MG/KG, CYCLE 6, DAYS 1,8
     Route: 042
     Dates: start: 20220527, end: 20220603
  7. SACITUZUMAB GOVITECAN [Suspect]
     Active Substance: SACITUZUMAB GOVITECAN
     Dosage: 7.5 MG/KG, CYCLE 7, DAYS 1,8
     Route: 042
     Dates: start: 20220617, end: 20220624
  8. SACITUZUMAB GOVITECAN [Suspect]
     Active Substance: SACITUZUMAB GOVITECAN
     Dosage: 7.5 MG/KG, CYCLE 8, DAYS 1,8
     Route: 042
     Dates: start: 20220708, end: 20220715
  9. SACITUZUMAB GOVITECAN [Suspect]
     Active Substance: SACITUZUMAB GOVITECAN
     Dosage: 7.5 MG/KG, CYCLE 9, DAYS 1,8
     Route: 042
     Dates: start: 20220810, end: 20220816
  10. SACITUZUMAB GOVITECAN [Suspect]
     Active Substance: SACITUZUMAB GOVITECAN
     Dosage: 5 MG/KG, CYCLE 10, DAYS 1,8
     Route: 042
     Dates: start: 20220908, end: 20220914
  11. SACITUZUMAB GOVITECAN [Suspect]
     Active Substance: SACITUZUMAB GOVITECAN
     Dosage: 5 MG/KG, CYCLE 11, DAYS 1,8
     Route: 042
     Dates: start: 20220928, end: 20221005
  12. SACITUZUMAB GOVITECAN [Suspect]
     Active Substance: SACITUZUMAB GOVITECAN
     Dosage: 5 MG/KG
     Route: 042
     Dates: end: 20221011

REACTIONS (14)
  - Lung disorder [Recovered/Resolved]
  - Escherichia sepsis [Recovered/Resolved]
  - Hyperthermia [Recovered/Resolved]
  - Oxygen saturation decreased [Recovered/Resolved]
  - Cell death [Recovered/Resolved]
  - Acute kidney injury [Unknown]
  - Febrile neutropenia [Recovered/Resolved]
  - Diarrhoea [Recovered/Resolved]
  - Diarrhoea [Unknown]
  - Anaemia [Recovered/Resolved]
  - Anaemia [Recovered/Resolved]
  - Anaemia [Recovered/Resolved]
  - Dehydration [Unknown]
  - Off label use [Unknown]

NARRATIVE: CASE EVENT DATE: 20220225
